FAERS Safety Report 4498840-6 (Version None)
Quarter: 2004Q4

REPORT INFORMATION
  Report Type: 
  Country: None (occurrence: None)
  Receive Date: 20041108
  Receipt Date: 20041022
  Transmission Date: 20050328
  Serious: Yes (Hospitalization)
  Sender: FDA-Public Use
  Company Number: 2004-SW-00325SW

PATIENT
  Age: 49 Year
  Sex: Male

DRUGS (5)
  1. SPIRIVA [Suspect]
     Indication: CHRONIC OBSTRUCTIVE AIRWAYS DISEASE
     Dosage: IH
     Route: 055
     Dates: start: 20031101, end: 20040602
  2. MESTINON [Concomitant]
  3. BRICANYL [Concomitant]
  4. PROPAVAN(PROPIOMAZINE MALEATE) [Concomitant]
  5. FLUTIDE(FLUTICASONE PROPIONATE) [Concomitant]

REACTIONS (3)
  - CONDITION AGGRAVATED [None]
  - DIPLOPIA [None]
  - MYASTHENIA GRAVIS [None]
